FAERS Safety Report 9451074 (Version 1)
Quarter: 2013Q3

REPORT INFORMATION
  Report Type: Report from Study
  Country: DE (occurrence: DE)
  Receive Date: 20130809
  Receipt Date: 20130809
  Transmission Date: 20140515
  Serious: Yes (Death, Hospitalization)
  Sender: FDA-Public Use
  Company Number: DE-ABBOTT-13P-062-1131633-00

PATIENT
  Sex: Male

DRUGS (2)
  1. TRENANTONE [Suspect]
     Indication: PROSTATE CANCER METASTATIC
     Route: 050
     Dates: start: 20121121, end: 20121121
  2. ACE INHIBITOR / AT1-ANTAGONIST [Concomitant]
     Indication: HYPERTENSION
     Dosage: (AGENTS ACTING ON THE RENIN-ANGIOTENSIN SYSTEM)
     Route: 065

REACTIONS (4)
  - Urinary retention [Fatal]
  - Hyperkalaemia [Fatal]
  - Renal failure acute [Fatal]
  - Febrile infection [Fatal]
